FAERS Safety Report 17678688 (Version 2)
Quarter: 2020Q2

REPORT INFORMATION
  Report Type: Spontaneous
  Country: US (occurrence: US)
  Receive Date: 20200417
  Receipt Date: 20200514
  Transmission Date: 20200714
  Serious: Yes (Other)
  Sender: FDA-Public Use
  Company Number: US-ASTRAZENECA-2020SE50020

PATIENT
  Sex: Female
  Weight: 81.6 kg

DRUGS (8)
  1. ZOLOFT [Suspect]
     Active Substance: SERTRALINE HYDROCHLORIDE
     Route: 065
  2. SEROQUEL [Suspect]
     Active Substance: QUETIAPINE FUMARATE
     Indication: SLEEP DISORDER
     Dosage: GENERIC
     Route: 065
  3. SEROQUEL [Suspect]
     Active Substance: QUETIAPINE FUMARATE
     Indication: SLEEP DISORDER
     Route: 048
     Dates: start: 2002
  4. SEROQUEL [Suspect]
     Active Substance: QUETIAPINE FUMARATE
     Indication: SLEEP DISORDER
     Route: 048
  5. SEROQUEL [Suspect]
     Active Substance: QUETIAPINE FUMARATE
     Indication: SLEEP DISORDER
     Route: 048
     Dates: start: 202004
  6. ELAVIL [Suspect]
     Active Substance: AMITRIPTYLINE HYDROCHLORIDE
     Route: 065
  7. DULOXETINE. [Concomitant]
     Active Substance: DULOXETINE
     Dates: start: 2020
  8. KLONOPIN [Concomitant]
     Active Substance: CLONAZEPAM

REACTIONS (22)
  - Weight increased [Unknown]
  - Loss of consciousness [Recovered/Resolved]
  - Pallor [Recovered/Resolved]
  - Psychomotor hyperactivity [Unknown]
  - Intentional product misuse [Unknown]
  - Insomnia [Recovered/Resolved]
  - Hyperreflexia [Recovered/Resolved]
  - Abdominal discomfort [Recovered/Resolved]
  - Strabismus [Recovered/Resolved]
  - Glucose tolerance impaired [Not Recovered/Not Resolved]
  - Drug ineffective [Unknown]
  - Drug intolerance [Recovered/Resolved]
  - Bipolar disorder [Not Recovered/Not Resolved]
  - Malaise [Recovered/Resolved]
  - Diabetes mellitus [Not Recovered/Not Resolved]
  - Sleep disorder [Unknown]
  - Weight decreased [Unknown]
  - Mydriasis [Recovered/Resolved]
  - Feeling jittery [Recovered/Resolved]
  - Cerebrovascular accident [Unknown]
  - Feeling abnormal [Unknown]
  - Therapeutic response changed [Unknown]
